FAERS Safety Report 6202612-1 (Version None)
Quarter: 2009Q2

REPORT INFORMATION
  Report Type: 
  Country: None (occurrence: None)
  Receive Date: 20090521
  Receipt Date: 20090521
  Transmission Date: 20091009
  Serious: No
  Sender: FDA-Public Use
  Company Number: None

PATIENT
  Sex: Male

DRUGS (5)
  1. AMOXICILLIN [Suspect]
  2. SYNTHROID [Concomitant]
  3. SINGULAIR [Concomitant]
  4. AVAPRO [Concomitant]
  5. CENTRUM SILVER MULTIVITAMIN [Concomitant]

REACTIONS (14)
  - ACTIVITIES OF DAILY LIVING IMPAIRED [None]
  - ASTHENIA [None]
  - DRUG EFFECT DECREASED [None]
  - DRUG HYPERSENSITIVITY [None]
  - EMOTIONAL DISORDER [None]
  - FASCIITIS [None]
  - JOINT SWELLING [None]
  - MUSCULAR WEAKNESS [None]
  - PAIN [None]
  - POLYMYALGIA RHEUMATICA [None]
  - PRODUCT CONTAMINATION [None]
  - PROSTATE INFECTION [None]
  - RHEUMATOID ARTHRITIS [None]
  - SERUM SICKNESS [None]
